FAERS Safety Report 10071773 (Version 5)
Quarter: 2014Q4

REPORT INFORMATION
  Report Type: Report from Study
  Country: US (occurrence: US)
  Receive Date: 20140411
  Receipt Date: 20141121
  Transmission Date: 20150528
  Serious: Yes (Hospitalization)
  Sender: FDA-Public Use
  Company Number: US-BIOGENIDEC-2014BI032465

PATIENT
  Age: 60 Year
  Sex: Male

DRUGS (1)
  1. TYSABRI [Suspect]
     Active Substance: NATALIZUMAB
     Indication: MULTIPLE SCLEROSIS
     Route: 042
     Dates: start: 20080408, end: 20140211

REACTIONS (7)
  - Spinal column stenosis [Recovered/Resolved]
  - Back pain [Not Recovered/Not Resolved]
  - Dermal cyst [Recovered/Resolved]
  - Intervertebral disc compression [Recovered/Resolved]
  - General physical health deterioration [Unknown]
  - Neck pain [Not Recovered/Not Resolved]
  - Fall [Recovered/Resolved]

NARRATIVE: CASE EVENT DATE: 201312
